FAERS Safety Report 5537105-8 (Version None)
Quarter: 2007Q4

REPORT INFORMATION
  Report Type: 
  Country: None (occurrence: None)
  Receive Date: 20071207
  Receipt Date: 20071127
  Transmission Date: 20080405
  Serious: No
  Sender: FDA-Public Use
  Company Number: JP-ASTRAZENECA-2007AP07111

PATIENT
  Age: 67 Year
  Sex: Male

DRUGS (6)
  1. CRESTOR [Suspect]
     Indication: HYPERLIPIDAEMIA
     Route: 048
     Dates: start: 20070704, end: 20070924
  2. FRANDOL S [Concomitant]
     Indication: ANGINA PECTORIS
     Route: 062
     Dates: start: 20051025
  3. RACOL [Concomitant]
     Indication: ENTERAL NUTRITION
     Route: 048
     Dates: start: 20051227
  4. FERROMIA [Concomitant]
     Indication: ANAEMIA
     Route: 048
     Dates: start: 20051227
  5. PLAVIX [Concomitant]
     Indication: CAROTID ARTERIOSCLEROSIS
     Route: 048
     Dates: start: 20070704
  6. GRAMALIL [Concomitant]
     Indication: RESTLESSNESS
     Route: 048
     Dates: start: 20070704

REACTIONS (1)
  - BLOOD CREATININE INCREASED [None]
